FAERS Safety Report 9647620 (Version 1)
Quarter: 2013Q4

REPORT INFORMATION
  Report Type: Spontaneous
  Country: US (occurrence: US)
  Receive Date: 20131028
  Receipt Date: 20131028
  Transmission Date: 20140711
  Serious: No
  Sender: FDA-Public Use
  Company Number: US-009507513-1310USA008323

PATIENT
  Age: 21 Year
  Sex: Female

DRUGS (2)
  1. NUVARING [Suspect]
     Indication: CYST
     Dosage: 3 WEEKS IN 1 WEEK OUT FOR ONE WEEK
     Route: 067
     Dates: start: 2009
  2. NUVARING [Suspect]
     Indication: OVARIAN CYST

REACTIONS (2)
  - Inappropriate schedule of drug administration [Unknown]
  - No adverse event [Unknown]
